FAERS Safety Report 5958544 (Version 6)
Quarter: 2017Q2

REPORT INFORMATION
  Report Type: Spontaneous
  Country: US (occurrence: US)
  Receive Date: 20060111
  Receipt Date: 20170531
  Transmission Date: 20170830
  Serious: Yes (Other)
  Sender: FDA-Public Use
  Company Number: US-AMGEN-US163446

PATIENT
  Age: 61 Year
  Sex: Female
  Weight: 112.15 kg

DRUGS (6)
  1. FLUVASTATIN SODIUM. [Concomitant]
     Active Substance: FLUVASTATIN SODIUM
  2. OMEPRAZOLE. [Concomitant]
     Active Substance: OMEPRAZOLE
  3. IBUPROFEN. [Concomitant]
     Active Substance: IBUPROFEN
  4. AUGMENTIN [Concomitant]
     Active Substance: AMOXICILLIN\CLAVULANATE POTASSIUM
     Dosage: UNK UNK, BID
  5. ENBREL [Suspect]
     Active Substance: ETANERCEPT
     Indication: PSORIASIS
     Dosage: 50 MG, 2 TIMES/WK
     Route: 058
     Dates: start: 20050926, end: 20051024
  6. LEVOTHYROXINE SODIUM. [Concomitant]
     Active Substance: LEVOTHYROXINE SODIUM

REACTIONS (4)
  - Thyroid mass [Unknown]
  - Metastatic malignant melanoma [Recovering/Resolving]
  - Osteoarthritis [Unknown]
  - Joint effusion [Unknown]

NARRATIVE: CASE EVENT DATE: 200510
